FAERS Safety Report 12397418 (Version 4)
Quarter: 2016Q3

REPORT INFORMATION
  Report Type: Spontaneous
  Country: JP (occurrence: JP)
  Receive Date: 20160524
  Receipt Date: 20160705
  Transmission Date: 20161109
  Serious: Yes (Hospitalization)
  Sender: FDA-Public Use
  Company Number: JP-GLAXOSMITHKLINE-JP2016JPN070289

PATIENT
  Age: 33 Year
  Sex: Female

DRUGS (5)
  1. LAMICTAL [Suspect]
     Active Substance: LAMOTRIGINE
     Indication: BIPOLAR II DISORDER
     Dosage: 25 MG, QD
     Route: 048
     Dates: start: 20160425, end: 20160507
  2. REMERON [Suspect]
     Active Substance: MIRTAZAPINE
     Dosage: 15 MG, 1D
     Route: 048
     Dates: start: 20160503, end: 20160507
  3. RIVOTRIL [Concomitant]
     Active Substance: CLONAZEPAM
     Dosage: 1 MG, 1D
     Dates: start: 201603, end: 20160503
  4. LAMICTAL [Suspect]
     Active Substance: LAMOTRIGINE
     Indication: AFFECT LABILITY
  5. YOKUKANSAN [Suspect]
     Active Substance: HERBALS
     Dosage: 7.5 G, 1D
     Route: 048
     Dates: start: 201603, end: 20160507

REACTIONS (4)
  - Oral pain [Recovering/Resolving]
  - Oral mucosa erosion [Recovering/Resolving]
  - Drug eruption [Recovering/Resolving]
  - Rash generalised [Recovering/Resolving]

NARRATIVE: CASE EVENT DATE: 20160506
